FAERS Safety Report 8547814-4 (Version None)
Quarter: 2012Q3

REPORT INFORMATION
  Report Type: 
  Country: None (occurrence: None)
  Receive Date: 20120727
  Receipt Date: 20120504
  Transmission Date: 20120928
  Serious: Yes (Life-Threatening)
  Sender: FDA-Public Use
  Company Number: US-ASTRAZENECA-2012SE08331

PATIENT
  Age: 31 Year
  Sex: Female

DRUGS (7)
  1. SYNTHROID [Concomitant]
     Route: 048
  2. BENADRYL [Suspect]
  3. KLONOPIN [Concomitant]
     Route: 048
  4. VITAMIN D [Concomitant]
     Route: 048
  5. SEROQUEL XR [Suspect]
     Route: 048
  6. PROZAC [Concomitant]
     Route: 048
  7. SEROQUEL XR [Suspect]
     Route: 048

REACTIONS (13)
  - ANXIETY [None]
  - MAJOR DEPRESSION [None]
  - DERMAL CYST [None]
  - PERSONALITY DISORDER [None]
  - SUICIDE ATTEMPT [None]
  - DEPRESSION [None]
  - CHRONIC FATIGUE SYNDROME [None]
  - VITAMIN D DEFICIENCY [None]
  - BULIMIA NERVOSA [None]
  - ANOREXIA NERVOSA [None]
  - HYPOTHYROIDISM [None]
  - INITIAL INSOMNIA [None]
  - APHAGIA [None]
